FAERS Safety Report 4831953-5 (Version None)
Quarter: 2005Q4

REPORT INFORMATION
  Report Type: 
  Country: None (occurrence: None)
  Receive Date: 20051118
  Receipt Date: 20051013
  Transmission Date: 20060501
  Serious: Yes (Hospitalization, Other)
  Sender: FDA-Public Use
  Company Number: AU-NOVOPROD-247762

PATIENT
  Age: 66 Year
  Sex: Male
  Weight: 73 kg

DRUGS (2)
  1. NOVOSEVEN [Suspect]
     Indication: CARDIAC OPERATION
     Dosage: 6 MG, SINGLE
     Dates: start: 20040816
  2. GELOFUSINE                              /AUS/ [Concomitant]
     Dosage: 1500 ML, UNK

REACTIONS (2)
  - CARDIAC TAMPONADE [None]
  - CATHETER RELATED COMPLICATION [None]
